FAERS Safety Report 6254650-0 (Version None)
Quarter: 2009Q3

REPORT INFORMATION
  Report Type: 
  Country: None (occurrence: None)
  Receive Date: 20090702
  Receipt Date: 20090625
  Transmission Date: 20100115
  Serious: Yes (Hospitalization)
  Sender: FDA-Public Use
  Company Number: B0579925A

PATIENT
  Sex: Female
  Weight: 62 kg

DRUGS (8)
  1. LAPATINIB [Suspect]
     Indication: BREAST CANCER
     Dosage: 1250MG PER DAY
     Route: 048
     Dates: start: 20090409
  2. EPIRUBICIN [Suspect]
     Indication: BREAST CANCER
     Dosage: 90MG EVERY 3 WEEKS
     Route: 042
     Dates: start: 20090525
  3. CYCLOPHOSPHAMIDE [Suspect]
     Indication: BREAST CANCER
     Dosage: 600MG EVERY 3 WEEKS
     Route: 042
     Dates: start: 20090525
  4. TAVOR [Concomitant]
  5. GRANISETRON HCL [Concomitant]
     Dosage: 2MG PER DAY
     Dates: start: 20090526
  6. UROMITEXAN [Concomitant]
     Dosage: 400MG PER DAY
     Dates: start: 20090525, end: 20090525
  7. DEXAMETHASONE TAB [Concomitant]
     Dosage: 8MG PER DAY
     Dates: start: 20090525, end: 20090525
  8. IMAP [Concomitant]
     Dosage: 15MG PER DAY

REACTIONS (2)
  - HELICOBACTER GASTRITIS [None]
  - MALLORY-WEISS SYNDROME [None]
